FAERS Safety Report 8064163-1 (Version None)
Quarter: 2012Q1

REPORT INFORMATION
  Report Type: 
  Country: None (occurrence: None)
  Receive Date: 20120123
  Receipt Date: 20120116
  Transmission Date: 20120608
  Serious: Yes (Other)
  Sender: FDA-Public Use
  Company Number: DK-GLAXOSMITHKLINE-B0776641A

PATIENT
  Sex: Male

DRUGS (1)
  1. ZYBAN [Suspect]
     Indication: PRODUCT USED FOR UNKNOWN INDICATION
     Route: 048
     Dates: start: 20110815

REACTIONS (1)
  - TYPE 1 DIABETES MELLITUS [None]
